FAERS Safety Report 4667893-4 (Version None)
Quarter: 2005Q2

REPORT INFORMATION
  Report Type: 
  Country: None (occurrence: None)
  Receive Date: 20050520
  Receipt Date: 20050520
  Transmission Date: 20051028
  Serious: No
  Sender: FDA-Public Use
  Company Number: None

PATIENT
  Sex: Female
  Weight: 72 kg

DRUGS (12)
  1. TAXOTERE [Suspect]
     Indication: OVARIAN EPITHELIAL CANCER
     Dosage: 30 MG/M2 ADMINISTERED WEEKLY FOR 6 CONSECUTIVE WEEKS WITH LOW DOSE WHOLE ABDOMINAL
     Dates: start: 20050328
  2. RADIOTHERAPY [Suspect]
  3. ATIVAN [Concomitant]
  4. CLARINEX [Concomitant]
  5. FOLIC ACID [Concomitant]
  6. LEVOXYL [Concomitant]
  7. MAGNESIUM [Concomitant]
  8. MOTRIN [Concomitant]
  9. NIFEREX [Concomitant]
  10. VIACTIV [Concomitant]
  11. VITAMIN B6 [Concomitant]
  12. VIT C TAB [Concomitant]

REACTIONS (22)
  - BLOOD PRESSURE DECREASED [None]
  - CHILLS [None]
  - DECREASED APPETITE [None]
  - DRUG TOXICITY [None]
  - DYSPNOEA [None]
  - DYSPNOEA EXERTIONAL [None]
  - EPISTAXIS [None]
  - FATIGUE [None]
  - FEELING ABNORMAL [None]
  - HAEMATOCRIT DECREASED [None]
  - HAEMOGLOBIN DECREASED [None]
  - HEADACHE [None]
  - HEART RATE INCREASED [None]
  - NASAL CONGESTION [None]
  - NASAL DRYNESS [None]
  - OCULAR HYPERAEMIA [None]
  - PALLOR [None]
  - PLATELET COUNT DECREASED [None]
  - PYREXIA [None]
  - RESPIRATORY RATE INCREASED [None]
  - RETCHING [None]
  - THROMBOSIS [None]
